FAERS Safety Report 5211775-6 (Version None)
Quarter: 2007Q1

REPORT INFORMATION
  Report Type: 
  Country: None (occurrence: None)
  Receive Date: 20070112
  Receipt Date: 20070102
  Transmission Date: 20070707
  Serious: Yes (Death)
  Sender: FDA-Public Use
  Company Number: 2006EU002997

PATIENT
  Age: 9 Year
  Sex: Male
  Weight: 37.2 kg

DRUGS (6)
  1. PROGRAF [Suspect]
     Indication: RENAL TRANSPLANT
     Dosage: 4 MG, ORAL
     Route: 048
     Dates: start: 20030101, end: 20061026
  2. VORICONAZOLE (VORICONAZOLE) [Suspect]
     Indication: FUNGAL INFECTION
     Dosage: 6 MG/KG
  3. PREDNISOLONE [Concomitant]
  4. OMEPRAZOLE [Concomitant]
  5. CALCIUM D SANDOZ (COLECALCIFEROL, CALCIUM) [Concomitant]
  6. PROPRANOLOL [Concomitant]

REACTIONS (17)
  - CONTINUOUS HAEMODIAFILTRATION [None]
  - DISSEMINATED INTRAVASCULAR COAGULATION [None]
  - DRUG INTERACTION [None]
  - DRUG LEVEL INCREASED [None]
  - FUNGAL INFECTION [None]
  - GENERAL PHYSICAL HEALTH DETERIORATION [None]
  - HAEMODYNAMIC INSTABILITY [None]
  - HAEMORRHAGE [None]
  - HEPATIC FAILURE [None]
  - HEPATIC LESION [None]
  - HYPOTENSION [None]
  - LYMPHOPROLIFERATIVE DISORDER [None]
  - POOR PERIPHERAL CIRCULATION [None]
  - RENAL FAILURE ACUTE [None]
  - SEPSIS [None]
  - SPLENIC LESION [None]
  - TACHYCARDIA [None]
